FAERS Safety Report 12285880 (Version 4)
Quarter: 2016Q2

REPORT INFORMATION
  Report Type: Spontaneous
  Country: US (occurrence: US)
  Receive Date: 20160420
  Receipt Date: 20160616
  Transmission Date: 20160815
  Serious: Yes (Other)
  Sender: FDA-Public Use
  Company Number: US-GLAXOSMITHKLINE-US2016GSK054817

PATIENT
  Age: 31 Year
  Sex: Female

DRUGS (1)
  1. LAMICTAL [Suspect]
     Active Substance: LAMOTRIGINE
     Indication: PRODUCT USED FOR UNKNOWN INDICATION
     Dosage: 100 MG, BID
     Route: 048

REACTIONS (6)
  - Disorientation [Unknown]
  - Amnesia [Unknown]
  - Seizure [Unknown]
  - Blood electrolytes abnormal [Unknown]
  - Somnolence [Unknown]
  - Loss of consciousness [Unknown]
